FAERS Safety Report 7615781-3 (Version None)
Quarter: 2011Q3

REPORT INFORMATION
  Report Type: 
  Country: None (occurrence: None)
  Receive Date: 20110711
  Receipt Date: 20110705
  Transmission Date: 20111222
  Serious: Yes (Other)
  Sender: FDA-Public Use
  Company Number: TPA2011A03476

PATIENT
  Age: 58 Year
  Sex: Male
  Weight: 78.4723 kg

DRUGS (9)
  1. METFORMIN HCL [Concomitant]
  2. ALTACE [Concomitant]
  3. TRICOR (ADENOSINE) [Concomitant]
  4. LEXAPRO [Concomitant]
  5. ADDERALL (DEXAMETHASONE SULFATE, AMFETAMINE SULFATE, DEXAMFETAMINE SAC [Concomitant]
  6. ACTOS [Suspect]
     Indication: DIABETES MELLITUS
     Dosage: 45 MG, 1 IN 1 D, PER ORAL; 30 MG, 1 IN 1 D, PER ORAL
     Route: 048
     Dates: start: 20051201, end: 20110624
  7. ACTOS [Suspect]
     Indication: DIABETES MELLITUS
     Dosage: 45 MG, 1 IN 1 D, PER ORAL; 30 MG, 1 IN 1 D, PER ORAL
     Route: 048
     Dates: start: 20050321, end: 20050101
  8. ACTOS [Suspect]
     Indication: DIABETES MELLITUS
     Dosage: 45 MG, 1 IN 1 D, PER ORAL; 30 MG, 1 IN 1 D, PER ORAL
     Route: 048
     Dates: start: 20050101, end: 20050101
  9. ZYBAN [Concomitant]

REACTIONS (1)
  - BLADDER CANCER [None]
